FAERS Safety Report 15463405 (Version 1)
Quarter: 2018Q4

REPORT INFORMATION
  Report Type: Spontaneous
  Country: PL (occurrence: PL)
  Receive Date: 20181004
  Receipt Date: 20181004
  Transmission Date: 20190204
  Serious: Yes (Other)
  Sender: FDA-Public Use
  Company Number: PL-ROCHE-2189961

PATIENT
  Age: 67 Year
  Sex: Female

DRUGS (4)
  1. DEXAMETAZON [Concomitant]
     Active Substance: DEXAMETHASONE
     Route: 042
  2. DOCETAXEL. [Concomitant]
     Active Substance: DOCETAXEL
  3. HERCEPTIN [Suspect]
     Active Substance: TRASTUZUMAB
     Indication: BREAST CANCER
     Route: 058
  4. PERJETA [Suspect]
     Active Substance: PERTUZUMAB
     Indication: BREAST CANCER
     Route: 065

REACTIONS (10)
  - Dyspnoea [Unknown]
  - Hypersensitivity [Unknown]
  - Hyperhidrosis [Unknown]
  - Shock [Unknown]
  - Restlessness [Unknown]
  - Anxiety [Unknown]
  - Blood pressure increased [Unknown]
  - Erythema [Unknown]
  - Loss of consciousness [Unknown]
  - Heart rate increased [Unknown]
